FAERS Safety Report 14581034 (Version 2)
Quarter: 2018Q2

REPORT INFORMATION
  Report Type: Spontaneous
  Country: US (occurrence: US)
  Receive Date: 20180228
  Receipt Date: 20180402
  Transmission Date: 20180711
  Serious: No
  Sender: FDA-Public Use
  Company Number: US-PFIZER INC-2018081483

PATIENT
  Age: 33 Year
  Sex: Female

DRUGS (1)
  1. EUCRISA [Suspect]
     Active Substance: CRISABOROLE
     Indication: DERMATITIS ATOPIC
     Dosage: UNK, AS NEEDED (APPLY TO AFFECTED AREA BID)
     Route: 061
     Dates: start: 20171212

REACTIONS (5)
  - Dermatitis [Recovered/Resolved]
  - Eczema [Unknown]
  - Condition aggravated [Recovered/Resolved]
  - Condition aggravated [Unknown]
  - Drug ineffective [Unknown]
